FAERS Safety Report 5916723-9 (Version None)
Quarter: 2008Q4

REPORT INFORMATION
  Report Type: 
  Country: None (occurrence: None)
  Receive Date: 20081009
  Receipt Date: 20080929
  Transmission Date: 20090506
  Serious: Yes (Other)
  Sender: FDA-Public Use
  Company Number: 2008BI022974

PATIENT
  Sex: Female
  Weight: 85.2762 kg

DRUGS (3)
  1. AVONEX [Suspect]
     Indication: MULTIPLE SCLEROSIS
     Dosage: 30 UG; QW; IM
     Route: 030
     Dates: start: 20080611
  2. . [Concomitant]
  3. . [Concomitant]

REACTIONS (6)
  - BLADDER CANCER [None]
  - BLADDER DISORDER [None]
  - CALCINOSIS [None]
  - MUSCLE SPASTICITY [None]
  - NEPHROLITHIASIS [None]
  - URINARY TRACT INFECTION [None]
